FAERS Safety Report 4283330-6 (Version None)
Quarter: 2004Q1

REPORT INFORMATION
  Report Type: 
  Country: None (occurrence: None)
  Receive Date: 20040122
  Receipt Date: 20040108
  Transmission Date: 20041129
  Serious: Yes (Death)
  Sender: FDA-Public Use
  Company Number: 234704

PATIENT
  Age: 9 Year

DRUGS (1)
  1. NOVOSEVEN [Suspect]
     Indication: BONE MARROW TRANSPLANT
     Dosage: 2 DOSES, INTRAVENOUS
     Route: 042

REACTIONS (1)
  - RESPIRATORY FAILURE [None]
